FAERS Safety Report 13276260 (Version 1)
Quarter: 2017Q1

REPORT INFORMATION
  Report Type: Spontaneous
  Country: US (occurrence: US)
  Receive Date: 20170228
  Receipt Date: 20170228
  Transmission Date: 20170428
  Serious: Yes (Other)
  Sender: FDA-Public Use
  Company Number: None

PATIENT
  Age: 14 Year
  Sex: Male
  Weight: 38.25 kg

DRUGS (1)
  1. POLYETHYLENE GLYCOL 3350. [Suspect]
     Active Substance: POLYETHYLENE GLYCOL 3350
     Indication: CONSTIPATION
     Dosage: ?          QUANTITY:2 CAPSULE(S);?
     Route: 048

REACTIONS (5)
  - Malaise [None]
  - Negative thoughts [None]
  - Educational problem [None]
  - Crying [None]
  - Pain [None]

NARRATIVE: CASE EVENT DATE: 20090201
